FAERS Safety Report 5324238-4 (Version None)
Quarter: 2007Q2

REPORT INFORMATION
  Report Type: 
  Country: None (occurrence: None)
  Receive Date: 20070507
  Receipt Date: 20070426
  Transmission Date: 20071010
  Serious: Yes (Other)
  Sender: FDA-Public Use
  Company Number: 430001L07SWE

PATIENT
  Age: 13 Year
  Sex: Female

DRUGS (1)
  1. NOVANTRONE [Suspect]
     Indication: MULTIPLE SCLEROSIS
     Dosage: 12MG/M2, 1 IN 3 MONTHS, INTRAVENOUS (NOT OTHERWISE SPECIFIED)

REACTIONS (4)
  - BONE MARROW FAILURE [None]
  - CARDIAC FAILURE [None]
  - CARDIOTOXICITY [None]
  - NAUSEA [None]
